FAERS Safety Report 8771594 (Version 2)
Quarter: 2012Q4

REPORT INFORMATION
  Report Type: Report from Study
  Country: FR (occurrence: FR)
  Receive Date: 20120906
  Receipt Date: 20121203
  Transmission Date: 20130627
  Serious: No
  Sender: FDA-Public Use
  Company Number: FR-NOVOPROD-359090

PATIENT
  Age: 52 Year
  Sex: Male
  Weight: 145 kg

DRUGS (5)
  1. LIRAGLUTIDE FLEXPEN [Suspect]
     Indication: TYPE 2 DIABETES MELLITUS
     Dosage: 1.8 mg, qd
     Route: 058
     Dates: start: 20110318, end: 20120619
  2. NISISCO [Concomitant]
     Indication: HYPERTENSION
     Dosage: 185 mg, qd
     Route: 048
     Dates: start: 20060112
  3. LERCANIDIPINE [Concomitant]
     Indication: HYPERTENSION
     Dosage: 20 mg, qd
     Route: 048
     Dates: start: 20071217
  4. METFORMIN [Concomitant]
     Indication: TYPE 2 DIABETES MELLITUS
     Dosage: 3 g, qd
     Route: 048
     Dates: start: 20050622
  5. DIAMICRON [Concomitant]
     Indication: TYPE 2 DIABETES MELLITUS
     Dosage: 120 mg, qd
     Route: 048
     Dates: start: 20071217

REACTIONS (2)
  - Liver function test abnormal [Unknown]
  - Pancreatic enzymes abnormal [Unknown]
